FAERS Safety Report 9848707 (Version 2)
Quarter: 2014Q1

REPORT INFORMATION
  Report Type: Report from Study
  Country: CN (occurrence: CN)
  Receive Date: 20140128
  Receipt Date: 20140130
  Transmission Date: 20141002
  Serious: Yes (Death)
  Sender: FDA-Public Use
  Company Number: PHHY2014CN009056

PATIENT
  Sex: Female

DRUGS (1)
  1. EXJADE [Suspect]
     Indication: MYELODYSPLASTIC SYNDROME
     Dosage: 875 MG, QD
     Route: 048
     Dates: start: 20120811

REACTIONS (2)
  - Myelodysplastic syndrome [Fatal]
  - Malignant neoplasm progression [Fatal]
